FAERS Safety Report 5250625-9 (Version None)
Quarter: 2007Q1

REPORT INFORMATION
  Report Type: 
  Country: None (occurrence: None)
  Receive Date: 20070228
  Receipt Date: 20060607
  Transmission Date: 20070707
  Serious: Yes (Life-Threatening, Hospitalization, Other)
  Sender: FDA-Public Use
  Company Number: US-GLAXOSMITHKLINE-A0608233A

PATIENT
  Sex: Female

DRUGS (3)
  1. LAMICTAL [Suspect]
     Indication: EPILEPSY
     Dosage: 25MG TWICE PER DAY
     Route: 048
  2. STEROIDS [Suspect]
  3. NO CONCURRENT MEDICATION [Concomitant]

REACTIONS (7)
  - DYSPNOEA [None]
  - EYE SWELLING [None]
  - GENITAL RASH [None]
  - LIP SWELLING [None]
  - PRURITUS GENITAL [None]
  - RENAL FAILURE [None]
  - STEVENS-JOHNSON SYNDROME [None]
